FAERS Safety Report 17555338 (Version 2)
Quarter: 2020Q4

REPORT INFORMATION
  Report Type: Spontaneous
  Country: JP (occurrence: JP)
  Receive Date: 20200318
  Receipt Date: 20201016
  Transmission Date: 20210113
  Serious: Yes (Hospitalization, Other)
  Sender: FDA-Public Use
  Company Number: JP-SA-2020SA063291

PATIENT

DRUGS (6)
  1. METHOTREXATE. [Suspect]
     Active Substance: METHOTREXATE
     Dosage: 6 MG, QW
     Route: 048
     Dates: start: 20150411, end: 20150522
  2. TACROLIMUS MONOHYDRATE [Suspect]
     Active Substance: TACROLIMUS
     Indication: RHEUMATOID ARTHRITIS
     Dosage: 1.5 MG, QD
     Route: 065
     Dates: start: 20151215
  3. ARAVA [Suspect]
     Active Substance: LEFLUNOMIDE
     Indication: RHEUMATOID ARTHRITIS
     Dosage: 20 MG, QD
     Route: 048
     Dates: start: 20151007, end: 20180219
  4. METHOTREXATE. [Suspect]
     Active Substance: METHOTREXATE
     Dosage: 8 MG, QW
     Route: 048
     Dates: start: 20150523, end: 20150703
  5. METHOTREXATE. [Suspect]
     Active Substance: METHOTREXATE
     Dosage: TREATMENT DURATION: 6 MONTHS LONGER, LESS THAN 3 YEARS
     Route: 048
  6. METHOTREXATE. [Suspect]
     Active Substance: METHOTREXATE
     Indication: RHEUMATOID ARTHRITIS
     Dosage: 10 MG, QW
     Route: 048
     Dates: start: 20150704, end: 20151004

REACTIONS (2)
  - Breast cancer [Unknown]
  - Breast pain [Unknown]

NARRATIVE: CASE EVENT DATE: 201712
